FAERS Safety Report 4707362-6 (Version None)
Quarter: 2005Q3

REPORT INFORMATION
  Report Type: 
  Country: None (occurrence: None)
  Receive Date: 20050706
  Receipt Date: 20050704
  Transmission Date: 20060218
  Serious: Yes (Life-Threatening, Hospitalization)
  Sender: FDA-Public Use
  Company Number: PHRM2005FR02016

PATIENT
  Age: 40 Year
  Sex: Male

DRUGS (2)
  1. ATHYMIL [Concomitant]
     Route: 048
  2. LEPONEX [Suspect]
     Indication: SCHIZOPHRENIA
     Route: 048
     Dates: end: 20050630

REACTIONS (3)
  - AGRANULOCYTOSIS [None]
  - PHARYNGITIS [None]
  - WHITE BLOOD CELL COUNT DECREASED [None]
